FAERS Safety Report 8982867 (Version 1)
Quarter: 2012Q4

REPORT INFORMATION
  Report Type: 
  Country: US (occurrence: US)
  Receive Date: 20121212
  Receipt Date: 20121212
  Transmission Date: 20130627
  Serious: Yes (Death)
  Sender: FDA-Public Use
  Company Number: US-ASTELLAS-1123749

PATIENT
  Sex: Male

DRUGS (8)
  1. AVASTIN [Suspect]
     Indication: BRAIN NEOPLASM MALIGNANT
     Route: 065
  2. TARCEVA [Suspect]
     Indication: PRODUCT USED FOR UNKNOWN INDICATION
     Route: 065
  3. OXALIPLATIN [Concomitant]
  4. GEMCITABINE [Concomitant]
  5. TEMOZOLOMIDE [Concomitant]
  6. KEPPRA [Concomitant]
  7. DECADRON [Concomitant]
  8. IRINOTECAN [Concomitant]

REACTIONS (9)
  - Death [Fatal]
  - Disease progression [Unknown]
  - Thrombocytopenia [Unknown]
  - Haemorrhage [Unknown]
  - Cellulitis [Unknown]
  - Headache [Unknown]
  - Gait disturbance [Unknown]
  - Vision blurred [Unknown]
  - Diplopia [Unknown]
